FAERS Safety Report 7707566-4 (Version None)
Quarter: 2011Q3

REPORT INFORMATION
  Report Type: 
  Country: None (occurrence: None)
  Receive Date: 20110818
  Receipt Date: 20110808
  Transmission Date: 20111222
  Serious: Yes (Hospitalization)
  Sender: FDA-Public Use
  Company Number: B0739541A

PATIENT
  Age: 65 Year
  Sex: Male

DRUGS (10)
  1. BENAZEPRIL HYDROCHLORIDE [Concomitant]
  2. ASPIRIN [Concomitant]
  3. FUROSEMIDE [Concomitant]
  4. GLIPIZIDE [Concomitant]
  5. AMODIPINE [Concomitant]
  6. SIMAVASTATIN [Concomitant]
  7. LEVOTHYROXINE SODIUM [Concomitant]
  8. CALCIUM CARBONATE [Concomitant]
  9. ACYCLOVIR [Suspect]
     Indication: RASH
     Dosage: ORAL
     Route: 048
  10. PHENYTOIN [Concomitant]

REACTIONS (16)
  - COGNITIVE DISORDER [None]
  - RASH PAPULAR [None]
  - CONFUSIONAL STATE [None]
  - BODY TEMPERATURE DECREASED [None]
  - ATAXIA [None]
  - MENTAL STATUS CHANGES [None]
  - BLOOD PRESSURE INCREASED [None]
  - SOMNOLENCE [None]
  - ERYTHEMA [None]
  - DYSARTHRIA [None]
  - APHASIA [None]
  - HEART RATE DECREASED [None]
  - SCAB [None]
  - NYSTAGMUS [None]
  - TOXICITY TO VARIOUS AGENTS [None]
  - CARDIAC MURMUR [None]
